FAERS Safety Report 26141473 (Version 1)
Quarter: 2025Q4

REPORT INFORMATION
  Report Type: Spontaneous
  Country: US (occurrence: US)
  Receive Date: 20251210
  Receipt Date: 20251210
  Transmission Date: 20260118
  Serious: No
  Sender: RADIUS PHARM
  Company Number: US-RADIUS HEALTH INC.-US-RADIUS-25054834

PATIENT
  Sex: Female

DRUGS (1)
  1. TYMLOS [Suspect]
     Active Substance: ABALOPARATIDE
     Indication: Menopause
     Dosage: 80 MICROGRAM, QD
     Route: 058

REACTIONS (2)
  - Livedo reticularis [Not Recovered/Not Resolved]
  - Product use in unapproved indication [Unknown]
